FAERS Safety Report 15291551 (Version 4)
Quarter: 2018Q4

REPORT INFORMATION
  Report Type: Report from Study
  Country: US (occurrence: US)
  Receive Date: 20180817
  Receipt Date: 20181231
  Transmission Date: 20190204
  Serious: Yes (Death, Hospitalization)
  Sender: FDA-Public Use
  Company Number: US-ACTELION-A-NJ2018-170409

PATIENT
  Age: 78 Year
  Sex: Female

DRUGS (6)
  1. OPSUMIT [Suspect]
     Active Substance: MACITENTAN
     Indication: PULMONARY ARTERIAL HYPERTENSION
     Dosage: 10 MG, QD
     Route: 048
     Dates: start: 20171107, end: 20181031
  2. SILDENAFIL. [Concomitant]
     Active Substance: SILDENAFIL
  3. PLAVIX [Concomitant]
     Active Substance: CLOPIDOGREL BISULFATE
  4. LASIX [Concomitant]
     Active Substance: FUROSEMIDE
     Indication: OEDEMA PERIPHERAL
     Dosage: 20 MG, UNK
  5. PREDNISONE. [Concomitant]
     Active Substance: PREDNISONE
     Dosage: 50 MG, UNK
  6. LEVOTHYROXINE. [Concomitant]
     Active Substance: LEVOTHYROXINE

REACTIONS (22)
  - Hypoxia [Unknown]
  - Fall [Unknown]
  - Unresponsive to stimuli [Unknown]
  - Blood potassium decreased [Unknown]
  - Asthenia [Unknown]
  - Sarcoidosis [Fatal]
  - Acute myocardial infarction [Recovering/Resolving]
  - Acute respiratory failure [Unknown]
  - Troponin increased [Unknown]
  - Fatigue [Unknown]
  - Oedema [Unknown]
  - Pyrexia [Unknown]
  - Muscular weakness [Unknown]
  - Oral discharge [Unknown]
  - Gait disturbance [Unknown]
  - Oedema peripheral [Unknown]
  - Pneumonia [Unknown]
  - Treatment noncompliance [Unknown]
  - Oral candidiasis [Unknown]
  - Leukocytosis [Unknown]
  - Mobility decreased [Unknown]
  - Somnolence [Unknown]

NARRATIVE: CASE EVENT DATE: 20180324
